FAERS Safety Report 14379662 (Version 1)
Quarter: 2018Q1

REPORT INFORMATION
  Report Type: Spontaneous
  Country: HR (occurrence: HR)
  Receive Date: 20180112
  Receipt Date: 20180112
  Transmission Date: 20180509
  Serious: Yes (Other)
  Sender: FDA-Public Use
  Company Number: HR-CIPLA LTD.-2018HR00267

PATIENT

DRUGS (4)
  1. DEPAKINE CHRONO 500 MG [Suspect]
     Active Substance: VALPROIC ACID
     Dosage: 30000 MG, DAILY
     Route: 048
     Dates: start: 20171001, end: 20171001
  2. SERTRALINE [Suspect]
     Active Substance: SERTRALINE HYDROCHLORIDE
     Dosage: 5000 MG, DAILY
     Route: 048
     Dates: start: 20171001, end: 20171001
  3. ZOLPIDEM TARTARATE [Suspect]
     Active Substance: ZOLPIDEM TARTRATE
     Dosage: 200 MG, DAILY
     Route: 048
     Dates: start: 20171001, end: 20171001
  4. APAURIN [Suspect]
     Active Substance: DIAZEPAM
     Dosage: 50 MG, DAILY
     Route: 048
     Dates: start: 20171001, end: 20171001

REACTIONS (3)
  - Somnolence [Unknown]
  - Suicide attempt [Unknown]
  - Hypotension [Unknown]

NARRATIVE: CASE EVENT DATE: 20171001
